FAERS Safety Report 23407006 (Version 1)
Quarter: 2024Q1

REPORT INFORMATION
  Report Type: Spontaneous
  Country: US (occurrence: US)
  Receive Date: 20240116
  Receipt Date: 20240116
  Transmission Date: 20240410
  Serious: Yes (Other)
  Sender: FDA-Public Use
  Company Number: US-BRIAN CONNER SVP QUALITY AND CHIEF COMPLIANCE OFFICER-2024XER00012

PATIENT

DRUGS (1)
  1. GVOKE [Suspect]
     Active Substance: GLUCAGON

REACTIONS (2)
  - Blindness [Recovered/Resolved]
  - Loss of consciousness [Unknown]
